FAERS Safety Report 4319423-4 (Version None)
Quarter: 2004Q1

REPORT INFORMATION
  Report Type: 
  Country: None (occurrence: None)
  Receive Date: 20040316
  Receipt Date: 20040302
  Transmission Date: 20041129
  Serious: Yes (Hospitalization, Other)
  Sender: FDA-Public Use
  Company Number: USA040360740

PATIENT
  Age: 74 Year
  Sex: Female

DRUGS (4)
  1. HUMULIN N [Suspect]
     Indication: DIABETES MELLITUS NON-INSULIN-DEPENDENT
     Dates: start: 19900101
  2. HUMULIN R [Suspect]
     Indication: DIABETES MELLITUS NON-INSULIN-DEPENDENT
     Dates: start: 19900101
  3. NORVASC [Concomitant]
  4. LIPITOR [Concomitant]

REACTIONS (6)
  - CATARACT [None]
  - CONVULSION [None]
  - DIABETIC END STAGE RENAL DISEASE [None]
  - DRUG INTERACTION [None]
  - MACULAR DEGENERATION [None]
  - THROMBOSIS [None]
